FAERS Safety Report 5141422-3 (Version None)
Quarter: 2006Q4

REPORT INFORMATION
  Report Type: 
  Country: None (occurrence: None)
  Receive Date: 20061101
  Receipt Date: 20061027
  Transmission Date: 20070319
  Serious: Yes (Other)
  Sender: FDA-Public Use
  Company Number: ES-GLAXOSMITHKLINE-B0444847A

PATIENT
  Age: 43 Year
  Sex: Female

DRUGS (3)
  1. SALMETEROL [Suspect]
     Indication: ASTHMA
     Route: 055
     Dates: start: 20060101, end: 20060101
  2. BUDESONIDE [Concomitant]
     Indication: ASTHMA
     Dosage: 400MCG TWICE PER DAY
     Route: 055
     Dates: start: 19990101
  3. CORTICOID [Concomitant]
     Indication: ASTHMA
     Route: 030
     Dates: start: 20060101, end: 20060101

REACTIONS (1)
  - AMENORRHOEA [None]
